FAERS Safety Report 9728453 (Version 1)
Quarter: 2013Q4

REPORT INFORMATION
  Report Type: Spontaneous
  Country: CA (occurrence: CA)
  Receive Date: 20131204
  Receipt Date: 20131204
  Transmission Date: 20140711
  Serious: Yes (Disabling, Other)
  Sender: FDA-Public Use
  Company Number: CA-ASTRAZENECA-2013SE87866

PATIENT
  Age: 70 Year
  Sex: Female

DRUGS (6)
  1. CRESTOR [Suspect]
     Route: 048
  2. CRESTOR [Suspect]
     Dosage: PMS, 10 MG DAILY
     Route: 048
  3. ATIVAN [Concomitant]
  4. ATORVASTATIN CALCIUM [Concomitant]
  5. CALCIUM [Concomitant]
  6. SYNTHROID [Concomitant]

REACTIONS (4)
  - Paraesthesia oral [Recovered/Resolved]
  - Speech disorder [Recovered/Resolved]
  - Transient ischaemic attack [Recovered/Resolved]
  - Product substitution issue [Recovered/Resolved]
